FAERS Safety Report 20872621 (Version 3)
Quarter: 2022Q3

REPORT INFORMATION
  Report Type: Spontaneous
  Country: US (occurrence: US)
  Receive Date: 20220525
  Receipt Date: 20220805
  Transmission Date: 20221026
  Serious: Yes (Hospitalization, Other)
  Sender: FDA-Public Use
  Company Number: US-BAYER-2022A070979

PATIENT
  Age: 72 Year
  Sex: Male

DRUGS (5)
  1. STIVARGA [Suspect]
     Active Substance: REGORAFENIB
     Indication: Product used for unknown indication
     Dosage: UNK
     Route: 048
  2. LONSURF [Suspect]
     Active Substance: TIPIRACIL HYDROCHLORIDE\TRIFLURIDINE
     Indication: Rectal cancer
     Dosage: 75 MG, BID (ON DAYS 1-5 AND DAYS 8-12 IN A 28 DAY CYCLE)
     Dates: start: 20220210
  3. LONSURF [Suspect]
     Active Substance: TIPIRACIL HYDROCHLORIDE\TRIFLURIDINE
     Indication: Rectal cancer
     Dosage: UNK
     Dates: start: 20220425
  4. IVERMECTIN [Suspect]
     Active Substance: IVERMECTIN
     Dosage: 1.5 MG, QD
  5. IVERMECTIN [Suspect]
     Active Substance: IVERMECTIN
     Dosage: 3 MG, QD

REACTIONS (11)
  - Neoplasm progression [Not Recovered/Not Resolved]
  - Bladder dilatation [Unknown]
  - Urinary retention [Unknown]
  - Myalgia [Unknown]
  - Fatigue [Not Recovered/Not Resolved]
  - Decreased appetite [Not Recovered/Not Resolved]
  - White blood cell count decreased [Recovered/Resolved]
  - Red blood cell count decreased [Recovered/Resolved]
  - Insomnia [None]
  - Weight decreased [Not Recovered/Not Resolved]
  - Product dose omission issue [None]
